FAERS Safety Report 7038811-9 (Version None)
Quarter: 2010Q4

REPORT INFORMATION
  Report Type: 
  Country: None (occurrence: None)
  Receive Date: 20101012
  Receipt Date: 20101004
  Transmission Date: 20110411
  Serious: No
  Sender: FDA-Public Use
  Company Number: US-BIOGENIDEC-2010BI034759

PATIENT
  Age: 37 Year
  Sex: Female

DRUGS (5)
  1. TYSABRI [Suspect]
     Indication: MULTIPLE SCLEROSIS
     Route: 042
     Dates: start: 20061102, end: 20070104
  2. TYSABRI [Suspect]
     Route: 042
     Dates: start: 20070917, end: 20071217
  3. TYSABRI [Suspect]
     Route: 042
     Dates: start: 20100317
  4. AVONEX [Concomitant]
     Indication: MULTIPLE SCLEROSIS
     Route: 030
  5. BETASERON [Concomitant]
     Indication: MULTIPLE SCLEROSIS

REACTIONS (1)
  - INFLUENZA [None]
